FAERS Safety Report 5493219-2 (Version None)
Quarter: 2007Q4

REPORT INFORMATION
  Report Type: 
  Country: None (occurrence: None)
  Receive Date: 20071023
  Receipt Date: 20071018
  Transmission Date: 20080405
  Serious: Yes (Hospitalization)
  Sender: FDA-Public Use
  Company Number: B0491998A

PATIENT
  Age: 77 Year
  Sex: Female

DRUGS (1)
  1. CLAMOXYL [Suspect]
     Indication: ERYSIPELAS
     Route: 065
     Dates: start: 20070717, end: 20070720

REACTIONS (7)
  - CHEILITIS [None]
  - CONJUNCTIVITIS [None]
  - DERMATITIS EXFOLIATIVE [None]
  - LEUKOCYTOCLASTIC VASCULITIS [None]
  - MUCOSAL EROSION [None]
  - MUCOUS MEMBRANE DISORDER [None]
  - TOXIC SKIN ERUPTION [None]
